FAERS Safety Report 15995600 (Version 1)
Quarter: 2019Q1

REPORT INFORMATION
  Report Type: Report from Study
  Country: IE (occurrence: IE)
  Receive Date: 20190222
  Receipt Date: 20190222
  Transmission Date: 20190418
  Serious: Yes (Other)
  Sender: FDA-Public Use
  Company Number: IE-JNJFOC-20190223099

PATIENT
  Age: 48 Year
  Sex: Male

DRUGS (12)
  1. CETRINE [Concomitant]
     Route: 050
  2. NEO CYTAMEN [Concomitant]
     Route: 050
  3. IBUPROFEN. [Concomitant]
     Active Substance: IBUPROFEN
     Route: 050
  4. SERTRALINE [Concomitant]
     Active Substance: SERTRALINE HYDROCHLORIDE
     Route: 050
  5. XYMEL [Concomitant]
     Route: 050
  6. TRAMADOL. [Concomitant]
     Active Substance: TRAMADOL
     Route: 050
  7. GLYTRIN [Concomitant]
     Dosage: PRN
     Route: 050
  8. PARACETAMOL [Concomitant]
     Active Substance: ACETAMINOPHEN
     Route: 050
  9. ATOCOR [Concomitant]
     Active Substance: ATORVASTATIN
     Route: 050
  10. LANSOPRAZOLE. [Concomitant]
     Active Substance: LANSOPRAZOLE
     Route: 050
  11. STELARA [Suspect]
     Active Substance: USTEKINUMAB
     Indication: PSORIASIS
     Dosage: AS PER PRESCRIPTION
     Route: 058
     Dates: start: 20150424
  12. LANSOPRAZOLE. [Concomitant]
     Active Substance: LANSOPRAZOLE
     Route: 050

REACTIONS (1)
  - Lower respiratory tract infection [Recovered/Resolved]

NARRATIVE: CASE EVENT DATE: 20190203
